FAERS Safety Report 8820522 (Version 1)
Quarter: 2012Q4

REPORT INFORMATION
  Report Type: 
  Country: US (occurrence: US)
  Receive Date: 20121002
  Receipt Date: 20121002
  Transmission Date: 20130627
  Serious: No
  Sender: FDA-Public Use
  Company Number: US-B.I. PHARMACEUTICALS,INC./RIDGEFIELD-2012-BP-23532BP

PATIENT
  Age: 64 Year
  Sex: Female

DRUGS (16)
  1. SPIRIVA [Suspect]
     Indication: CHRONIC OBSTRUCTIVE PULMONARY DISEASE
     Dosage: 18 mcg
     Route: 055
  2. SPIRIVA [Suspect]
     Dosage: 18 mcg
     Route: 048
     Dates: start: 20120926, end: 20120926
  3. AMITRIPTYLINE [Concomitant]
     Route: 048
  4. CALCIUM WITH VITAMIN D [Concomitant]
     Route: 048
  5. CLONAZEPAM [Concomitant]
     Route: 048
  6. DILANTIN [Concomitant]
     Route: 048
  7. FLUTICASONE [Concomitant]
     Route: 045
  8. KETOROLAC [Concomitant]
  9. LEXAPRO [Concomitant]
     Route: 048
  10. LISINOPRIL [Concomitant]
     Route: 048
  11. MORPHINE [Concomitant]
     Route: 048
  12. PRAVASTATIN [Concomitant]
     Route: 048
  13. PROAIR [Concomitant]
     Route: 055
  14. PROTONIX [Concomitant]
     Route: 048
  15. METOPROLOL [Concomitant]
     Route: 048
  16. ZOFRAN [Concomitant]
     Route: 048

REACTIONS (1)
  - Incorrect route of drug administration [Recovered/Resolved]
